FAERS Safety Report 21485697 (Version 2)
Quarter: 2023Q1

REPORT INFORMATION
  Report Type: Spontaneous
  Country: US (occurrence: US)
  Receive Date: 20221020
  Receipt Date: 20230110
  Transmission Date: 20230418
  Serious: Yes (Death)
  Sender: FDA-Public Use
  Company Number: US-LUNDBECK-DKLU3053690

PATIENT
  Age: 66 Year
  Sex: Male

DRUGS (1)
  1. NORTHERA [Suspect]
     Active Substance: DROXIDOPA
     Indication: Product used for unknown indication
     Route: 048
     Dates: start: 201704, end: 20220815

REACTIONS (1)
  - Multiple system atrophy [Fatal]
